FAERS Safety Report 8835815 (Version 8)
Quarter: 2013Q4

REPORT INFORMATION
  Report Type: Spontaneous
  Country: FR (occurrence: FR)
  Receive Date: 20121011
  Receipt Date: 20131106
  Transmission Date: 20140711
  Serious: Yes (Hospitalization)
  Sender: FDA-Public Use
  Company Number: FR-GLAXOSMITHKLINE-B0834659A

PATIENT
  Age: 0 Year
  Sex: Female

DRUGS (22)
  1. ZOPHREN [Suspect]
     Indication: NAUSEA
     Dosage: 4MG THREE TIMES PER DAY
     Route: 064
     Dates: start: 20120321, end: 20120324
  2. AMOXICILLINE [Suspect]
     Route: 064
     Dates: start: 20120304, end: 20120316
  3. MIDAZOLAM [Suspect]
     Route: 064
     Dates: start: 20120304, end: 20120323
  4. ATRACURIUM [Suspect]
     Route: 064
     Dates: start: 20120304, end: 201203
  5. SUFENTANIL [Suspect]
     Route: 064
     Dates: start: 20120316, end: 20120323
  6. TAZOCILLINE [Suspect]
     Route: 064
     Dates: start: 20120316, end: 20120320
  7. CELESTENE [Suspect]
     Route: 064
     Dates: start: 20120316, end: 20120317
  8. KETAMINE [Suspect]
     Route: 064
     Dates: start: 20120317, end: 20120320
  9. PERFALGAN [Suspect]
     Dosage: 1G SEE DOSAGE TEXT
     Route: 064
     Dates: start: 20120324, end: 20120325
  10. ATOSIBAN [Suspect]
     Route: 064
     Dates: start: 20120324, end: 20120326
  11. INEXIUM [Suspect]
     Dosage: 40MG PER DAY
     Route: 064
     Dates: start: 20120319, end: 20120325
  12. LOVENOX [Suspect]
     Dosage: 40UNIT PER DAY
     Route: 064
     Dates: start: 20120304, end: 20120426
  13. OLICLINOMEL [Suspect]
     Indication: PARENTERAL NUTRITION
     Dosage: 1500ML PER DAY
     Route: 064
     Dates: start: 20120326
  14. KABIVEN [Suspect]
     Route: 064
     Dates: start: 20120304, end: 20120316
  15. PROPOFOL [Suspect]
     Route: 064
     Dates: start: 20120310, end: 20120316
  16. CEFTRIAXONE [Suspect]
     Route: 064
     Dates: start: 20120304, end: 20120311
  17. FUMAFER [Suspect]
     Route: 064
     Dates: start: 20120304, end: 20120316
  18. TAMIFLU [Suspect]
     Route: 064
     Dates: start: 20120310, end: 20120316
  19. RULID [Suspect]
     Route: 064
     Dates: start: 20120310, end: 20120316
  20. CELESTENE [Suspect]
     Route: 064
     Dates: start: 20120424, end: 20120425
  21. EMLA [Concomitant]
     Route: 064
     Dates: start: 20120426
  22. HYPNOTICS (UNSPECIFIED) [Concomitant]
     Route: 064

REACTIONS (10)
  - Foetal growth restriction [Recovering/Resolving]
  - Apnoea neonatal [Recovered/Resolved]
  - Feeding disorder neonatal [Recovered/Resolved]
  - Device related sepsis [Recovered/Resolved]
  - Oligohydramnios [Unknown]
  - Jaundice acholuric [Unknown]
  - Inflammation [Unknown]
  - Cerebral haemorrhage [Recovered/Resolved]
  - Foetal exposure during pregnancy [Unknown]
  - Premature baby [Unknown]
